FAERS Safety Report 22084544 (Version 1)
Quarter: 2023Q1

REPORT INFORMATION
  Report Type: Report from Study
  Country: GB (occurrence: GB)
  Receive Date: 20230310
  Receipt Date: 20230310
  Transmission Date: 20230418
  Serious: Yes (Other)
  Sender: FDA-Public Use
  Company Number: GB-002147023-NVSC2022GB102486

PATIENT
  Sex: Female

DRUGS (1)
  1. COSENTYX [Suspect]
     Active Substance: SECUKINUMAB
     Indication: Psoriatic arthropathy
     Dosage: 300 MG, QMO (1 PRE-FILLED DISPOSABLE INJECTION)
     Route: 058

REACTIONS (7)
  - Haematochezia [Not Recovered/Not Resolved]
  - Mental disorder [Unknown]
  - Irritable bowel syndrome [Unknown]
  - Gastrointestinal motility disorder [Unknown]
  - Haemorrhoids [Unknown]
  - Anal fissure [Unknown]
  - Anxiety [Unknown]
